FAERS Safety Report 24962637 (Version 1)
Quarter: 2025Q1

REPORT INFORMATION
  Report Type: Spontaneous
  Country: US (occurrence: US)
  Receive Date: 20250212
  Receipt Date: 20250212
  Transmission Date: 20250409
  Serious: Yes (Other)
  Sender: OXFORD PHARMACEUTICALS, LLC
  Company Number: US-Oxford Pharmaceuticals, LLC-2170984

PATIENT
  Age: 66 Year
  Sex: Female

DRUGS (1)
  1. DIPYRIDAMOLE [Suspect]
     Active Substance: DIPYRIDAMOLE
     Indication: Ventricular extrasystoles

REACTIONS (3)
  - Angina pectoris [Recovered/Resolved]
  - Off label use [Unknown]
  - Electrocardiogram ST segment depression [Recovered/Resolved]
